FAERS Safety Report 4783912-9 (Version None)
Quarter: 2005Q3

REPORT INFORMATION
  Report Type: 
  Country: None (occurrence: None)
  Receive Date: 20050929
  Receipt Date: 20050923
  Transmission Date: 20060218
  Serious: Yes (Death, Hospitalization, Other)
  Sender: FDA-Public Use
  Company Number: US-MERCK-0509USA03859

PATIENT
  Age: 75 Year
  Sex: Female
  Weight: 84 kg

DRUGS (19)
  1. VIOXX [Suspect]
     Indication: ARTHRALGIA
     Route: 048
     Dates: start: 20010101, end: 20030416
  2. ZOCOR [Concomitant]
     Route: 065
  3. XANAX [Concomitant]
     Route: 065
  4. PREVACID [Concomitant]
     Route: 065
  5. CARDIZEM [Concomitant]
     Route: 065
  6. LANOXIN [Concomitant]
     Route: 065
  7. LISINOPRIL-BC [Concomitant]
     Route: 065
  8. LASIX [Concomitant]
     Route: 065
  9. LORTAB [Concomitant]
     Route: 065
  10. PREDNISONE [Concomitant]
     Route: 065
  11. CELEXA [Concomitant]
     Route: 065
  12. LORAZEPAM [Concomitant]
     Route: 065
  13. DIAZEPAM [Concomitant]
     Route: 065
  14. TRAZODONE HYDROCHLORIDE [Concomitant]
     Route: 065
  15. POTASSIUM (UNSPECIFIED) [Concomitant]
     Route: 065
  16. IRON (UNSPECIFIED) [Concomitant]
     Route: 065
  17. EFFEXOR XR [Concomitant]
     Route: 065
  18. ZOLOFT [Concomitant]
     Route: 065
  19. ZYPREXA [Concomitant]
     Route: 065

REACTIONS (12)
  - ATRIAL FIBRILLATION [None]
  - ATRIOVENTRICULAR BLOCK [None]
  - CEREBROVASCULAR ACCIDENT [None]
  - CHEST PAIN [None]
  - CHRONIC OBSTRUCTIVE PULMONARY DISEASE [None]
  - COSTOCHONDRITIS [None]
  - DEPRESSION [None]
  - ENDOCARDITIS [None]
  - HEART RATE IRREGULAR [None]
  - PEPTIC ULCER [None]
  - PNEUMONIA [None]
  - VENTRICULAR HYPERTROPHY [None]
